FAERS Safety Report 4525198-6 (Version None)
Quarter: 2004Q4

REPORT INFORMATION
  Report Type: 
  Country: None (occurrence: None)
  Receive Date: 20041116
  Receipt Date: 20040720
  Transmission Date: 20050328
  Serious: No
  Sender: FDA-Public Use
  Company Number: S04-USA-04923-01

PATIENT
  Age: 64 Year
  Sex: Male

DRUGS (5)
  1. NAMENDA [Suspect]
     Indication: AMNESIA
     Dosage: 5 MG QD PO
     Route: 048
     Dates: start: 20040719
  2. ARICEPT [Concomitant]
  3. DILANTIN [Concomitant]
  4. ALTACE [Concomitant]
  5. HYZAAR [Concomitant]

REACTIONS (4)
  - DIZZINESS [None]
  - EAR CONGESTION [None]
  - MUSCLE TIGHTNESS [None]
  - NAUSEA [None]
